FAERS Safety Report 21843987 (Version 1)
Quarter: 2023Q1

REPORT INFORMATION
  Report Type: Spontaneous
  Country: US (occurrence: None)
  Receive Date: 20230109
  Receipt Date: 20230109
  Transmission Date: 20230418
  Serious: Yes (Other)
  Sender: FDA-Public Use
  Company Number: None

PATIENT
  Age: 26 Year
  Sex: Female
  Weight: 63.96 kg

DRUGS (1)
  1. OCREVUS [Suspect]
     Active Substance: OCRELIZUMAB
     Indication: Multiple sclerosis
     Dosage: OTHER FREQUENCY: EVERY 6 MONTHS?
     Route: 041
     Dates: start: 20171229, end: 20220831

REACTIONS (5)
  - Muscle spasms [None]
  - Nausea [None]
  - Defaecation urgency [None]
  - Abdominal distension [None]
  - Colitis [None]
